FAERS Safety Report 7202232-6 (Version None)
Quarter: 2010Q4

REPORT INFORMATION
  Report Type: 
  Country: None (occurrence: None)
  Receive Date: 20101229
  Receipt Date: 20101221
  Transmission Date: 20110411
  Serious: Yes (Disabling, Other)
  Sender: FDA-Public Use
  Company Number: US-ELI_LILLY_AND_COMPANY-US201012005540

PATIENT
  Sex: Male

DRUGS (16)
  1. HUMALOG MIX 75/25 [Suspect]
     Indication: DIABETES MELLITUS
     Dosage: 38 U, EACH MORNING
     Dates: start: 19950101
  2. HUMALOG MIX 75/25 [Suspect]
     Dosage: 42 U, EACH EVENING
     Dates: start: 19950101
  3. HUMALOG MIX 75/25 [Suspect]
     Dosage: UNK, AS NEEDED
     Dates: start: 19950101
  4. CYMBALTA [Suspect]
     Indication: DIABETIC NEUROPATHY
     Dosage: 60 MG, 2/D
     Dates: start: 20070101
  5. NEXIUM [Concomitant]
     Indication: COLITIS
  6. STROVITE [Concomitant]
  7. METFORMIN [Concomitant]
  8. DIOVAN [Concomitant]
  9. STARLIX [Concomitant]
  10. TRICOR [Concomitant]
  11. ASPIRIN [Concomitant]
  12. NIACIN [Concomitant]
  13. LOVAZA [Concomitant]
  14. AMLODIPINE BESYLATE [Concomitant]
  15. ALTACE [Concomitant]
  16. ALPHA LIPOIC ACID [Concomitant]

REACTIONS (17)
  - BASAL CELL CARCINOMA [None]
  - BLOOD GLUCOSE DECREASED [None]
  - BLOOD GLUCOSE INCREASED [None]
  - BURNING SENSATION [None]
  - COLITIS [None]
  - DIARRHOEA [None]
  - DRUG INEFFECTIVE [None]
  - FALL [None]
  - FEAR [None]
  - FEELING ABNORMAL [None]
  - GASTROINTESTINAL DISORDER [None]
  - GENERAL PHYSICAL HEALTH DETERIORATION [None]
  - HYPOAESTHESIA [None]
  - HYPOGLYCAEMIC UNCONSCIOUSNESS [None]
  - HYPOPHAGIA [None]
  - MOBILITY DECREASED [None]
  - WOUND [None]
